FAERS Safety Report 22168443 (Version 3)
Quarter: 2023Q2

REPORT INFORMATION
  Report Type: Spontaneous
  Country: US (occurrence: US)
  Receive Date: 20230403
  Receipt Date: 20230612
  Transmission Date: 20230722
  Serious: No
  Sender: FDA-Public Use
  Company Number: US-BRISTOL-MYERS SQUIBB COMPANY-2023-046936

PATIENT
  Age: 71 Year
  Sex: Female

DRUGS (5)
  1. REVLIMID [Suspect]
     Active Substance: LENALIDOMIDE
     Indication: Plasma cell myeloma
     Dosage: FREQUENCY: TAKE ONE CAPSULE (5 MG) BY MOUTH DAILY ON DAYS 1 THRU 14 OF 28 DAY CYCLE.
     Route: 048
     Dates: start: 20210617
  2. ASPIRIN [Concomitant]
     Active Substance: ASPIRIN
     Indication: Product used for unknown indication
  3. AZITHROMYCIN [Concomitant]
     Active Substance: AZITHROMYCIN
     Indication: Product used for unknown indication
  4. CHOLESTYRAMINE [Concomitant]
     Active Substance: CHOLESTYRAMINE
     Indication: Product used for unknown indication
  5. LEVAQUIN [Concomitant]
     Active Substance: LEVOFLOXACIN
     Indication: Product used for unknown indication

REACTIONS (3)
  - Illness [Unknown]
  - Off label use [Unknown]
  - Respiratory tract infection [Unknown]
